FAERS Safety Report 8888488 (Version 3)
Quarter: 2019Q3

REPORT INFORMATION
  Report Type: Report from Study
  Country: DE (occurrence: DE)
  Receive Date: 20121106
  Receipt Date: 20190708
  Transmission Date: 20191005
  Serious: Yes (Hospitalization)
  Sender: FDA-Public Use
  Company Number: DE-ROCHE-1152498

PATIENT
  Age: 49 Year
  Sex: Female
  Weight: 51.8 kg

DRUGS (9)
  1. DEXAMETHASONE. [Concomitant]
     Active Substance: DEXAMETHASONE
  2. PACLITAXEL. [Concomitant]
     Active Substance: PACLITAXEL
     Route: 042
     Dates: start: 20121025, end: 20121025
  3. FENISTIL [Concomitant]
     Active Substance: DIMETHINDENE
  4. RANITIDINE. [Concomitant]
     Active Substance: RANITIDINE
  5. PACLITAXEL. [Concomitant]
     Active Substance: PACLITAXEL
     Indication: OVARIAN CANCER
     Route: 042
     Dates: start: 20121005, end: 20121005
  6. CARBOPLATIN. [Concomitant]
     Active Substance: CARBOPLATIN
     Route: 042
     Dates: start: 20121025, end: 20121025
  7. ONDANSETRON [Concomitant]
     Active Substance: ONDANSETRON
  8. BEVACIZUMAB. [Suspect]
     Active Substance: BEVACIZUMAB
     Indication: OVARIAN CANCER
     Dosage: DATE OF LAST DOSE PRIOR TO SAE: 25/OCT/2012
     Route: 042
     Dates: start: 20121025, end: 20121025
  9. CARBOPLATIN. [Concomitant]
     Active Substance: CARBOPLATIN
     Indication: OVARIAN CANCER
     Route: 042
     Dates: start: 20121005, end: 20121005

REACTIONS (1)
  - Enterobiasis [Not Recovered/Not Resolved]

NARRATIVE: CASE EVENT DATE: 20121029
